FAERS Safety Report 4812258-5 (Version None)
Quarter: 2005Q4

REPORT INFORMATION
  Report Type: 
  Country: None (occurrence: None)
  Receive Date: 20051028
  Receipt Date: 20040928
  Transmission Date: 20060501
  Serious: No
  Sender: FDA-Public Use
  Company Number: US-GLAXOSMITHKLINE-A0527612A

PATIENT
  Age: 55 Year
  Sex: Female

DRUGS (9)
  1. ADVAIR DISKUS 100/50 [Suspect]
     Indication: ASTHMA
     Dosage: 1PUFF TWICE PER DAY
     Route: 055
     Dates: end: 20040401
  2. FOSAMAX [Concomitant]
  3. TYLENOL W/ CODEINE [Concomitant]
  4. VICODIN [Concomitant]
  5. FIORICET [Concomitant]
  6. PROGESTERONE [Concomitant]
  7. UNKNOWN MEDICATION [Concomitant]
  8. BACLOFEN [Concomitant]
  9. ALBUTEROL [Concomitant]

REACTIONS (1)
  - MIGRAINE [None]
